FAERS Safety Report 8596242-4 (Version None)
Quarter: 2012Q3

REPORT INFORMATION
  Report Type: 
  Country: None (occurrence: None)
  Receive Date: 20120815
  Receipt Date: 20120813
  Transmission Date: 20120928
  Serious: Yes (Death)
  Sender: FDA-Public Use
  Company Number: PHEH2012US015877

PATIENT
  Sex: Male
  Weight: 85.261 kg

DRUGS (9)
  1. LASIX [Concomitant]
  2. VICODIN [Concomitant]
  3. METOPROLOL TARTRATE [Concomitant]
  4. METFORMIN HYDROCHLORIDE [Concomitant]
  5. PREDNISONE TAB [Concomitant]
  6. EXJADE [Suspect]
     Indication: BLOOD DISORDER
     Dosage: 1250 MG, QD
     Route: 048
  7. EXJADE [Suspect]
     Indication: LYMPHATIC SYSTEM NEOPLASM
  8. ULTRAM [Concomitant]
  9. ZOCOR [Concomitant]

REACTIONS (1)
  - DEATH [None]
